FAERS Safety Report 15845286 (Version 6)
Quarter: 2019Q1

REPORT INFORMATION
  Report Type: Spontaneous
  Country: FI (occurrence: FI)
  Receive Date: 20190119
  Receipt Date: 20190305
  Transmission Date: 20190417
  Serious: Yes (Life-Threatening, Other)
  Sender: FDA-Public Use
  Company Number: FI-AMGEN-FINSP2019008054

PATIENT
  Age: 45 Year
  Sex: Female
  Weight: 59.9 kg

DRUGS (5)
  1. ENBREL [Suspect]
     Active Substance: ETANERCEPT
     Indication: BACK DISORDER
     Dosage: UNK
     Route: 065
  2. BURANA [Concomitant]
     Active Substance: IBUPROFEN
     Dosage: 800 MG, AS NEEDED
     Route: 048
  3. SIMPONI [Suspect]
     Active Substance: GOLIMUMAB
     Indication: SPONDYLOARTHROPATHY
     Dosage: 50 MG, MONTHLY
     Route: 058
     Dates: start: 20180201, end: 20181102
  4. ENBREL [Suspect]
     Active Substance: ETANERCEPT
     Indication: SPONDYLOARTHROPATHY
     Dosage: 50 MG, QWK
     Route: 058
     Dates: start: 20180104, end: 20180121
  5. SIMPONI [Suspect]
     Active Substance: GOLIMUMAB
     Indication: SPONDYLITIS

REACTIONS (9)
  - Injection site reaction [Unknown]
  - Metastases to liver [Unknown]
  - Flank pain [Unknown]
  - Metastases to lymph nodes [Unknown]
  - Adenocarcinoma gastric [Not Recovered/Not Resolved]
  - Infection [Recovered/Resolved]
  - Adenocarcinoma [Not Recovered/Not Resolved]
  - Back disorder [Not Recovered/Not Resolved]
  - Neoplasm malignant [Not Recovered/Not Resolved]

NARRATIVE: CASE EVENT DATE: 2018
